FAERS Safety Report 10466079 (Version 1)
Quarter: 2014Q3

REPORT INFORMATION
  Report Type: Spontaneous
  Country: US (occurrence: None)
  Receive Date: 20140919
  Receipt Date: 20140919
  Transmission Date: 20150326
  Serious: Yes (Hospitalization, Disabling)
  Sender: FDA-Public Use
  Company Number: None

PATIENT
  Age: 23 Year
  Sex: Female
  Weight: 79.38 kg

DRUGS (3)
  1. AMITRIPTYLIN [Concomitant]
     Active Substance: AMITRIPTYLINE
  2. NUVARING [Suspect]
     Active Substance: ETHINYL ESTRADIOL\ETONOGESTREL
     Indication: OVARIAN CYST
     Dates: start: 20140124, end: 20140604
  3. DEPAKOTE [Concomitant]
     Active Substance: DIVALPROEX SODIUM

REACTIONS (9)
  - Fall [None]
  - Chest discomfort [None]
  - Activities of daily living impaired [None]
  - Pain [None]
  - Peripheral coldness [None]
  - Tremor [None]
  - Headache [None]
  - Amnesia [None]
  - Abasia [None]

NARRATIVE: CASE EVENT DATE: 20140414
